FAERS Safety Report 7041201-6 (Version None)
Quarter: 2010Q3

REPORT INFORMATION
  Report Type: 
  Country: None (occurrence: None)
  Receive Date: 20100929
  Receipt Date: 20100603
  Transmission Date: 20110219
  Serious: No
  Sender: FDA-Public Use
  Company Number: US-WYE-H15667610

PATIENT
  Age: 50 Year
  Sex: Male
  Weight: 77.18 kg

DRUGS (6)
  1. PRISTIQ [Suspect]
     Indication: ANXIETY
     Dosage: (50 MG 1X PER 1 DAY) (50 MG 1X PER 3 DAY) (50 MG 1X PER 2 DAY)
     Dates: start: 20090815, end: 20100101
  2. PRISTIQ [Suspect]
     Indication: STRESS
     Dosage: (50 MG 1X PER 1 DAY) (50 MG 1X PER 3 DAY) (50 MG 1X PER 2 DAY)
     Dates: start: 20090815, end: 20100101
  3. PRISTIQ [Suspect]
     Indication: ANXIETY
     Dosage: (50 MG 1X PER 1 DAY) (50 MG 1X PER 3 DAY) (50 MG 1X PER 2 DAY)
     Dates: start: 20100101, end: 20100101
  4. PRISTIQ [Suspect]
     Indication: STRESS
     Dosage: (50 MG 1X PER 1 DAY) (50 MG 1X PER 3 DAY) (50 MG 1X PER 2 DAY)
     Dates: start: 20100101, end: 20100101
  5. PRISTIQ [Suspect]
     Indication: ANXIETY
     Dosage: (50 MG 1X PER 1 DAY) (50 MG 1X PER 3 DAY) (50 MG 1X PER 2 DAY)
     Dates: start: 20100101, end: 20100530
  6. PRISTIQ [Suspect]
     Indication: STRESS
     Dosage: (50 MG 1X PER 1 DAY) (50 MG 1X PER 3 DAY) (50 MG 1X PER 2 DAY)
     Dates: start: 20100101, end: 20100530

REACTIONS (6)
  - BALANCE DISORDER [None]
  - DIZZINESS [None]
  - DRUG WITHDRAWAL SYNDROME [None]
  - FEELING ABNORMAL [None]
  - PARAESTHESIA [None]
  - UNEVALUABLE EVENT [None]
